FAERS Safety Report 6357813-9 (Version None)
Quarter: 2009Q3

REPORT INFORMATION
  Report Type: 
  Country: None (occurrence: None)
  Receive Date: 20090911
  Receipt Date: 20090831
  Transmission Date: 20100115
  Serious: Yes (Hospitalization, Other)
  Sender: FDA-Public Use
  Company Number: 2009AP003518

PATIENT
  Age: 83 Year
  Sex: Male

DRUGS (5)
  1. GEMFIBROZIL [Suspect]
     Dosage: 600 MG;BID
  2. SIMVASTATIN [Suspect]
     Dosage: 80 MG;QD
  3. HYDROCHLOROTHIAZIDE [Concomitant]
  4. NSAID'S [Concomitant]
  5. ACE INHIBITOR NOS [Concomitant]

REACTIONS (4)
  - BLOOD ALBUMIN DECREASED [None]
  - DRUG INTERACTION [None]
  - RENAL FAILURE ACUTE [None]
  - RHABDOMYOLYSIS [None]
